FAERS Safety Report 7148831-1 (Version None)
Quarter: 2010Q4

REPORT INFORMATION
  Report Type: 
  Country: None (occurrence: None)
  Receive Date: 20101209
  Receipt Date: 20101207
  Transmission Date: 20110411
  Serious: Yes (Life-Threatening, Other)
  Sender: FDA-Public Use
  Company Number: PHHY2010US59534

PATIENT
  Sex: Female

DRUGS (1)
  1. VIVELLE-DOT [Suspect]
     Indication: OSTEOPOROSIS
     Dosage: 0.05 MG, UNK
     Route: 062

REACTIONS (5)
  - FEELING ABNORMAL [None]
  - GASTRIC BYPASS [None]
  - MALABSORPTION [None]
  - MALAISE [None]
  - MALNUTRITION [None]
